FAERS Safety Report 10676324 (Version 1)
Quarter: 2014Q4

REPORT INFORMATION
  Report Type: Other
  Country: DE (occurrence: DE)
  Receive Date: 20141226
  Receipt Date: 20141226
  Transmission Date: 20150529
  Serious: Yes (Other)
  Sender: FDA-Public Use
  Company Number: DE-LUPIN PHARMACEUTICALS INC.-E2B_00002947

PATIENT
  Age: 0 Year
  Sex: Male

DRUGS (1)
  1. LAMOTRIGIN [Suspect]
     Active Substance: LAMOTRIGINE
     Indication: EPILEPSY
     Route: 064
     Dates: start: 20120930, end: 20130628

REACTIONS (2)
  - Cafe au lait spots [Not Recovered/Not Resolved]
  - Foetal exposure during pregnancy [Unknown]
